FAERS Safety Report 9843650 (Version 2)
Quarter: 2013Q4

REPORT INFORMATION
  Report Type: Spontaneous
  Country: US (occurrence: None)
  Receive Date: 20131223
  Receipt Date: 20131223
  Transmission Date: 20140711
  Serious: Yes (Other)
  Sender: FDA-Public Use
  Company Number: 220011LEO

PATIENT
  Age: 75 Year
  Sex: Male

DRUGS (1)
  1. PICATO 0.05%, GEL [Suspect]
     Indication: PRECANCEROUS SKIN LESION
     Route: 061
     Dates: start: 20121223, end: 20121225

REACTIONS (6)
  - Eyelid oedema [None]
  - Application site pruritus [None]
  - Application site pruritus [None]
  - Drug administered at inappropriate site [None]
  - Incorrect dose administered [None]
  - Incorrect dose administered [None]
